FAERS Safety Report 19403673 (Version 1)
Quarter: 2021Q2

REPORT INFORMATION
  Report Type: Spontaneous
  Country: ES (occurrence: ES)
  Receive Date: 20210611
  Receipt Date: 20210611
  Transmission Date: 20210717
  Serious: Yes (Hospitalization)
  Sender: FDA-Public Use
  Company Number: ES-TEVA-2021-ES-1920194

PATIENT
  Age: 82 Year
  Sex: Male

DRUGS (10)
  1. NITROPLAST 10 PARCHES TRANSDERMICOS [Concomitant]
  2. OPTOVITE B12 1.000 MICROGRAMOS SOLUCION INYECTABLE [Concomitant]
  3. LISINOPRIL HIDROCLOROTIAZIDA CINFA 20 MG/12, 5 MG COMPRIMIDOS EFG [Concomitant]
  4. OMEPRAZOL DAVUR 20 MG CAPSULAS DURAS GASTRORRESISTENTES EFG [Concomitant]
  5. BISOPROLOL RATIOPHARM 5 MG COMPRIMIDOS EFG , 60 COMPRIMIDOS [Suspect]
     Active Substance: BISOPROLOL
     Indication: CARDIOVASCULAR DISORDER
     Route: 048
     Dates: start: 20061110
  6. ATORVASTATINA TEVAGEN 30 MG COMPRIMIDOS RECUBIERTOS CON PELICULA [Concomitant]
  7. ADIRO 300MG COMPRIMIDOS GASTRORRESISTENTES EFG [Concomitant]
  8. QUETIAPINA CINFA 25 MG COMPRIMIDOS RECUBIERTOS CON PELICULA EFG [Concomitant]
  9. HIDROFEROL 0,266 MG CAPSULAS BLANDAS [Concomitant]
  10. DEXKETOPROFENO CINFA 25 MG POLVO PARA SOLUCION ORAL EFG [Concomitant]

REACTIONS (1)
  - Atrioventricular block [Recovered/Resolved]

NARRATIVE: CASE EVENT DATE: 20210518
